FAERS Safety Report 9861858 (Version 1)
Quarter: 2014Q1

REPORT INFORMATION
  Report Type: Spontaneous
  Country: US (occurrence: US)
  Receive Date: 20140203
  Receipt Date: 20140203
  Transmission Date: 20141002
  Serious: No
  Sender: FDA-Public Use
  Company Number: US-PFIZER INC-2014027499

PATIENT
  Age: 64 Year
  Sex: Female

DRUGS (17)
  1. XALKORI [Suspect]
     Indication: LUNG NEOPLASM MALIGNANT
     Dosage: 250 MG, UNK
     Dates: start: 20131204
  2. ASPIRIN [Concomitant]
     Dosage: UNK
  3. CALCIUM [Concomitant]
     Dosage: UNK
  4. CRESTOR [Concomitant]
     Dosage: UNK
  5. DEXAMETHASONE [Concomitant]
     Dosage: UNK
  6. ENAPLEX [Concomitant]
     Dosage: UNK
  7. FOLIC ACID [Concomitant]
     Dosage: UNK
  8. LEVOTHROID [Concomitant]
     Dosage: UNK
  9. LIDODERM [Concomitant]
     Dosage: UNK
  10. MAGNESIUM [Concomitant]
     Dosage: UNK
  11. PREVACID [Concomitant]
     Dosage: UNK
  12. PROBIOTICA [Concomitant]
     Dosage: UNK
  13. PROTONIX [Concomitant]
     Dosage: UNK
  14. RELPAX [Concomitant]
     Dosage: UNK
  15. SINGULAIR [Concomitant]
     Dosage: UNK
  16. ZOFRAN [Concomitant]
     Dosage: UNK
  17. TUDORZA PRESSAIR [Concomitant]
     Dosage: UNK

REACTIONS (1)
  - Vertigo [Unknown]
